FAERS Safety Report 9571163 (Version 30)
Quarter: 2022Q3

REPORT INFORMATION
  Report Type: Report from Study
  Country: CA (occurrence: CA)
  Receive Date: 20131001
  Receipt Date: 20220714
  Transmission Date: 20221027
  Serious: Yes (Hospitalization)
  Sender: FDA-Public Use
  Company Number: PHHY2013CA108792

PATIENT
  Age: 68 Year
  Sex: Female

DRUGS (14)
  1. SANDOSTATIN LAR DEPOT [Suspect]
     Active Substance: OCTREOTIDE ACETATE
     Indication: Acromegaly
     Dosage: 20 MG, Q2W
     Route: 030
     Dates: start: 20091009
  2. SANDOSTATIN LAR DEPOT [Suspect]
     Active Substance: OCTREOTIDE ACETATE
  3. SANDOSTATIN LAR DEPOT [Suspect]
     Active Substance: OCTREOTIDE ACETATE
  4. METFORMIN [Suspect]
     Active Substance: METFORMIN HYDROCHLORIDE
     Indication: Product used for unknown indication
     Dosage: 750 MG, BID
     Route: 048
  5. XALATAN [Concomitant]
     Active Substance: LATANOPROST
     Indication: Product used for unknown indication
     Dosage: UNK
     Route: 065
  6. COSOPT [Concomitant]
     Active Substance: DORZOLAMIDE HYDROCHLORIDE\TIMOLOL MALEATE
     Indication: Product used for unknown indication
     Dosage: UNK
     Route: 065
  7. APO BRIMONIDINE P [Concomitant]
     Indication: Product used for unknown indication
     Dosage: UNK
     Route: 065
  8. LIPITOR [Concomitant]
     Active Substance: ATORVASTATIN CALCIUM
     Indication: Product used for unknown indication
     Dosage: UNK
     Route: 065
  9. SERTRALINE [Concomitant]
     Active Substance: SERTRALINE HYDROCHLORIDE
     Indication: Product used for unknown indication
     Dosage: UNK
     Route: 065
  10. NORFLEX [Concomitant]
     Active Substance: ORPHENADRINE CITRATE
     Indication: Product used for unknown indication
     Dosage: UNK
     Route: 065
  11. AVAPRO [Concomitant]
     Active Substance: IRBESARTAN
     Indication: Product used for unknown indication
     Dosage: UNK
     Route: 065
  12. SYNTHROID [Concomitant]
     Active Substance: LEVOTHYROXINE SODIUM
     Indication: Product used for unknown indication
     Dosage: UNK
     Route: 065
  13. ESTROGENS [Concomitant]
     Active Substance: ESTROGENS
     Indication: Product used for unknown indication
     Dosage: 10 MG, BID
     Route: 065
  14. LEVOTHYROXINE [Concomitant]
     Active Substance: LEVOTHYROXINE
     Indication: Product used for unknown indication
     Dosage: 0.05 MG, QW
     Route: 048

REACTIONS (25)
  - Chest pain [Unknown]
  - Arthralgia [Unknown]
  - Loss of consciousness [Unknown]
  - Road traffic accident [Unknown]
  - Sternal fracture [Unknown]
  - Syncope [Unknown]
  - Fracture pain [Unknown]
  - Blood pressure systolic increased [Unknown]
  - Abscess [Unknown]
  - Blood pressure increased [Unknown]
  - Sleep disorder [Unknown]
  - Migraine [Unknown]
  - Urinary tract infection [Unknown]
  - Pollakiuria [Unknown]
  - Micturition urgency [Unknown]
  - Dysuria [Unknown]
  - Blood urine present [Unknown]
  - Laryngitis [Unknown]
  - Dysphonia [Unknown]
  - Blood magnesium decreased [Unknown]
  - Headache [Recovering/Resolving]
  - Asthenia [Unknown]
  - Haemangioma of liver [Unknown]
  - Periarthritis [Unknown]
  - Inappropriate schedule of product administration [Unknown]

NARRATIVE: CASE EVENT DATE: 20130925
